FAERS Safety Report 8170389-9 (Version None)
Quarter: 2012Q1

REPORT INFORMATION
  Report Type: 
  Country: None (occurrence: None)
  Receive Date: 20120228
  Receipt Date: 20120214
  Transmission Date: 20120608
  Serious: Yes (Life-Threatening, Hospitalization)
  Sender: FDA-Public Use
  Company Number: GB-ELI_LILLY_AND_COMPANY-GB201202003884

PATIENT
  Age: 85 Year
  Sex: Male

DRUGS (13)
  1. LANSOPRAZOLE [Concomitant]
     Route: 048
  2. INSULIN [Concomitant]
  3. LACTULOSE [Concomitant]
     Route: 048
  4. BISOPROLOL FUMARATE [Concomitant]
  5. ISMN [Concomitant]
  6. RAMIPRIL [Concomitant]
     Route: 048
  7. NALOXONE HCL [Suspect]
     Indication: DEPRESSION
     Dosage: UNK, UNKNOWN
     Route: 048
     Dates: start: 20120120, end: 20120123
  8. ADCAL D3 [Concomitant]
  9. ASPIRIN [Concomitant]
     Route: 048
  10. TRAMADOL HCL [Concomitant]
     Route: 048
  11. CYCLIZINE [Concomitant]
     Route: 048
  12. NICORANDIL [Concomitant]
     Route: 048
  13. SENNA [Concomitant]

REACTIONS (8)
  - HEPATOTOXICITY [None]
  - JAUNDICE [None]
  - ABDOMINAL PAIN [None]
  - GLOMERULAR FILTRATION RATE DECREASED [None]
  - BLOOD BILIRUBIN INCREASED [None]
  - LIVER FUNCTION TEST ABNORMAL [None]
  - ALANINE AMINOTRANSFERASE INCREASED [None]
  - BLOOD FIBRINOGEN INCREASED [None]
